FAERS Safety Report 9753907 (Version 3)
Quarter: 2014Q1

REPORT INFORMATION
  Report Type: Spontaneous
  Country: FR (occurrence: FR)
  Receive Date: 20131213
  Receipt Date: 20140128
  Transmission Date: 20141002
  Serious: Yes (Hospitalization, Disabling, Other)
  Sender: FDA-Public Use
  Company Number: FR-ASTRAZENECA-2013SE90130

PATIENT
  Age: 24417 Day
  Sex: Male
  Weight: 87 kg

DRUGS (10)
  1. CRESTOR [Suspect]
     Indication: TYPE IIA HYPERLIPIDAEMIA
     Route: 048
     Dates: start: 2003, end: 20050201
  2. CRESTOR [Suspect]
     Indication: TYPE IIA HYPERLIPIDAEMIA
     Route: 048
     Dates: start: 20050201, end: 2013
  3. CRESTOR [Suspect]
     Indication: TYPE IIA HYPERLIPIDAEMIA
     Route: 048
     Dates: end: 20131120
  4. ATACAND [Concomitant]
     Indication: HYPERTENSION
     Route: 048
     Dates: start: 20050201
  5. TERALITHE [Concomitant]
     Indication: BIPOLAR DISORDER
     Dosage: 400 MG SR 1.5 DF EVERY DAY
     Dates: start: 1996
  6. DEROXAT [Concomitant]
     Indication: BIPOLAR DISORDER
     Dates: start: 2001
  7. DOLIPRANE [Concomitant]
  8. LOVENOX [Concomitant]
  9. INEXIUM [Concomitant]
  10. DUPHALAC [Concomitant]

REACTIONS (2)
  - Tendon rupture [Recovered/Resolved with Sequelae]
  - Tendonitis [Not Recovered/Not Resolved]
